FAERS Safety Report 4597114-2 (Version None)
Quarter: 2005Q1

REPORT INFORMATION
  Report Type: 
  Country: None (occurrence: None)
  Receive Date: 20050302
  Receipt Date: 20050222
  Transmission Date: 20050727
  Serious: Yes (Life-Threatening, Hospitalization, Disabling)
  Sender: FDA-Public Use
  Company Number: US-MERCK-0502USA02795

PATIENT
  Age: 55 Year
  Sex: Male

DRUGS (3)
  1. VIOXX [Suspect]
     Indication: ARTHRITIS
     Route: 048
     Dates: start: 20030101, end: 20040101
  2. MOBIC [Concomitant]
     Route: 065
  3. GLUCOPHAGE [Concomitant]
     Route: 065

REACTIONS (3)
  - ARTHRALGIA [None]
  - BALANCE DISORDER [None]
  - HAEMORRHAGE [None]
